FAERS Safety Report 8690831 (Version 4)
Quarter: 2013Q1

REPORT INFORMATION
  Report Type: Spontaneous
  Country: US (occurrence: US)
  Receive Date: 20120729
  Receipt Date: 20130225
  Transmission Date: 20140127
  Serious: Yes (Hospitalization, Disabling, Other)
  Sender: FDA-Public Use
  Company Number: US-009507513-1207USA005858

PATIENT
  Sex: Female

DRUGS (13)
  1. FOSAMAX [Suspect]
     Indication: OSTEOPOROSIS
     Dosage: 70 MG, UNK
     Route: 048
     Dates: start: 20001013, end: 20080421
  2. FOSAMAX [Suspect]
     Indication: OSTEOPOROSIS
     Dosage: 70 MG, UNK
     Route: 048
     Dates: start: 20080421, end: 20100621
  3. CALCIUM (UNSPECIFIED) (+) VITAMIN D (UNSPECIFIED) [Concomitant]
     Dosage: UNK UNK, QD
     Dates: start: 1970
  4. CYANOCOBALAMIN [Concomitant]
     Dosage: UNK
     Dates: start: 1970
  5. MAGNESIUM (UNSPECIFIED) [Concomitant]
     Dosage: UNK, QD
     Dates: start: 1970
  6. VITAMINS (UNSPECIFIED) [Concomitant]
     Dosage: UNK, QD
     Dates: start: 1970
  7. ASCORBIC ACID [Concomitant]
     Dosage: UNK, QD
     Dates: start: 1970
  8. PREVACID [Concomitant]
     Dosage: UNK
     Dates: start: 1997
  9. PRILOSEC [Concomitant]
     Dosage: UNK
     Dates: start: 2008, end: 2010
  10. IMITREX (SUMATRIPTAN) [Concomitant]
     Dosage: UNK
     Dates: start: 20000921, end: 20010216
  11. MAXALT [Concomitant]
     Dosage: UNK
     Dates: start: 20010216
  12. ZANTAC [Concomitant]
     Dosage: UNK
     Dates: start: 20000512
  13. ALENDRONATE SODIUM [Suspect]
     Dosage: 70 MG, UNK

REACTIONS (78)
  - Femur fracture [Unknown]
  - Femur fracture [Recovered/Resolved]
  - Internal fixation of fracture [Recovered/Resolved]
  - Intramedullary rod insertion [Unknown]
  - Chest pain [Recovered/Resolved]
  - Hypoxia [Recovered/Resolved]
  - Deep vein thrombosis [Unknown]
  - Peripheral embolism [Recovered/Resolved]
  - Cataract [Unknown]
  - Wrist fracture [Not Recovered/Not Resolved]
  - Chest pain [Unknown]
  - Deep vein thrombosis [Unknown]
  - Femur fracture [Recovered/Resolved]
  - Depression [Not Recovered/Not Resolved]
  - Low turnover osteopathy [Unknown]
  - Atelectasis [Unknown]
  - Hypercoagulation [Unknown]
  - Urine analysis abnormal [Unknown]
  - Full blood count abnormal [Unknown]
  - Bronchitis [Unknown]
  - Cellulitis [Unknown]
  - Insomnia [Unknown]
  - Decreased appetite [Unknown]
  - Sinusitis [Unknown]
  - Cough [Unknown]
  - Fatigue [Unknown]
  - Dysuria [Unknown]
  - Syncope [Unknown]
  - Nephrolithiasis [Unknown]
  - Fracture [Unknown]
  - Atrophic vulvovaginitis [Unknown]
  - Sleep apnoea syndrome [Unknown]
  - Upper respiratory tract infection [Unknown]
  - Bronchitis [Unknown]
  - Chest pain [Unknown]
  - Breast pain [Unknown]
  - Sinusitis [Unknown]
  - Cellulitis [Not Recovered/Not Resolved]
  - Viral infection [Unknown]
  - Acne [Unknown]
  - Pain [Unknown]
  - Bronchitis [Unknown]
  - Upper respiratory tract infection [Unknown]
  - Bronchitis [Unknown]
  - Upper respiratory tract infection [Unknown]
  - Rhinitis [Unknown]
  - Contusion [Unknown]
  - Joint injury [Unknown]
  - Hiatus hernia [Unknown]
  - Cholelithiasis [Unknown]
  - Intestinal dilatation [Unknown]
  - Dysthymic disorder [Unknown]
  - Amnesia [Unknown]
  - Oral candidiasis [Not Recovered/Not Resolved]
  - Electrocardiogram abnormal [Unknown]
  - Bronchitis [Unknown]
  - Hyperparathyroidism [Unknown]
  - Hypothyroidism [Unknown]
  - Hypertension [Unknown]
  - Sinusitis [Unknown]
  - Hepatic enzyme increased [Unknown]
  - Dehydration [Unknown]
  - Cerebral atrophy [Unknown]
  - Monoclonal gammopathy [Unknown]
  - Hypercalciuria [Unknown]
  - Osteopenia [Not Recovered/Not Resolved]
  - Ankle fracture [Unknown]
  - Wrist fracture [Unknown]
  - Dysthymic disorder [Unknown]
  - Anxiety [Unknown]
  - Vomiting [Unknown]
  - Vomiting [Unknown]
  - Oedema peripheral [Unknown]
  - Constipation [Unknown]
  - Abdominal pain [Unknown]
  - Rash [Unknown]
  - Oedema peripheral [Unknown]
  - Pain in extremity [Not Recovered/Not Resolved]
